FAERS Safety Report 24549147 (Version 4)
Quarter: 2025Q1

REPORT INFORMATION
  Report Type: Spontaneous
  Country: US (occurrence: US)
  Receive Date: 20241025
  Receipt Date: 20250128
  Transmission Date: 20250409
  Serious: Yes (Hospitalization, Other)
  Sender: NOVARTIS
  Company Number: US-002147023-NVSC2024US208333

PATIENT
  Sex: Male
  Weight: 71 kg

DRUGS (3)
  1. SCEMBLIX [Suspect]
     Active Substance: ASCIMINIB HYDROCHLORIDE
     Indication: Chronic myeloid leukaemia
     Dosage: 40 MG, QD
     Route: 048
  2. SCEMBLIX [Suspect]
     Active Substance: ASCIMINIB HYDROCHLORIDE
     Indication: Philadelphia chromosome positive
  3. SCEMBLIX [Suspect]
     Active Substance: ASCIMINIB HYDROCHLORIDE
     Indication: Remission not achieved

REACTIONS (4)
  - Hypoaesthesia [Recovering/Resolving]
  - Pancreatic enzymes increased [Not Recovered/Not Resolved]
  - Hepatic enzyme increased [Unknown]
  - Palatal swelling [Recovering/Resolving]
